FAERS Safety Report 25400482 (Version 2)
Quarter: 2025Q2

REPORT INFORMATION
  Report Type: Report from Study
  Country: AR (occurrence: AR)
  Receive Date: 20250605
  Receipt Date: 20250606
  Transmission Date: 20250717
  Serious: Yes (Other)
  Sender: JOHNSON AND JOHNSON
  Company Number: AR-JNJFOC-20230902978

PATIENT
  Age: 76 Year
  Sex: Female
  Weight: 74 kg

DRUGS (2)
  1. SIMPONI [Suspect]
     Active Substance: GOLIMUMAB
     Indication: Rheumatoid arthritis
     Route: 058
     Dates: start: 20230529
  2. CEFALEXINA [CEFALEXIN] [Concomitant]
     Indication: Product used for unknown indication

REACTIONS (9)
  - Rheumatoid arthritis [Not Recovered/Not Resolved]
  - Upper limb fracture [Unknown]
  - Urinary tract infection [Not Recovered/Not Resolved]
  - Osteoporosis [Recovering/Resolving]
  - Drug ineffective [Recovering/Resolving]
  - Acne [Unknown]
  - Nodule [Unknown]
  - Limb asymmetry [Unknown]
  - Skin infection [Unknown]

NARRATIVE: CASE EVENT DATE: 20230903
